FAERS Safety Report 26158503 (Version 1)
Quarter: 2025Q4

REPORT INFORMATION
  Report Type: Spontaneous
  Country: US (occurrence: None)
  Receive Date: 20251215
  Receipt Date: 20251215
  Transmission Date: 20260117
  Serious: Yes (Death)
  Sender: FDA-CTU
  Company Number: None

PATIENT
  Sex: Female

DRUGS (1)
  1. VITRAKVI [Suspect]
     Active Substance: LAROTRECTINIB
     Indication: Rectosigmoid cancer
     Dosage: 50 MG TWICE A DAY ORAL
     Route: 048
     Dates: start: 20250820

REACTIONS (1)
  - Neoplasm malignant [None]
